FAERS Safety Report 8283039-8 (Version None)
Quarter: 2012Q2

REPORT INFORMATION
  Report Type: 
  Country: None (occurrence: None)
  Receive Date: 20120413
  Receipt Date: 20120329
  Transmission Date: 20120825
  Serious: Yes (Hospitalization, Other)
  Sender: FDA-Public Use
  Company Number: FR-ROCHE-1054724

PATIENT
  Sex: Female
  Weight: 64 kg

DRUGS (5)
  1. DETICENE [Concomitant]
  2. VEMURAFENIB [Suspect]
     Indication: PRODUCT USED FOR UNKNOWN INDICATION
     Route: 065
     Dates: start: 20110427
  3. TEMODAL [Concomitant]
  4. MUPHORAN [Concomitant]
  5. IPILIMUMAB [Concomitant]

REACTIONS (2)
  - HAEMATURIA [None]
  - METASTASES TO BLADDER [None]
